FAERS Safety Report 14121356 (Version 1)
Quarter: 2017Q4

REPORT INFORMATION
  Report Type: Spontaneous
  Country: US (occurrence: US)
  Receive Date: 20171024
  Receipt Date: 20171024
  Transmission Date: 20180321
  Serious: No
  Sender: FDA-Public Use
  Company Number: US-MYLANLABS-2017M1061859

PATIENT
  Age: 62 Year
  Sex: Male
  Weight: 58 kg

DRUGS (1)
  1. AZELASTINE HYDROCHLORIDE NASAL SPRAY [Suspect]
     Active Substance: AZELASTINE HYDROCHLORIDE
     Indication: SEASONAL ALLERGY
     Dosage: 2 SPRAYS BID
     Route: 045
     Dates: start: 201708

REACTIONS (1)
  - Drug ineffective [Unknown]

NARRATIVE: CASE EVENT DATE: 201708
